FAERS Safety Report 5557962-9 (Version None)
Quarter: 2007Q4

REPORT INFORMATION
  Report Type: 
  Country: None (occurrence: None)
  Receive Date: 20071130
  Receipt Date: 20070824
  Transmission Date: 20080405
  Serious: No
  Sender: FDA-Public Use
  Company Number: US200708005785

PATIENT
  Age: 64 Year
  Sex: Female

DRUGS (7)
  1. BYETTA [Suspect]
     Indication: GLUCOSE TOLERANCE IMPAIRED
     Dosage: 5 UG, 2/D, SUBCUTANEOUS
     Route: 058
     Dates: start: 20070501
  2. AVANDIA [Concomitant]
  3. XALATAN [Concomitant]
  4. HYZAAR [Concomitant]
  5. CRESTOR [Concomitant]
  6. LEVOTHYROXINE SODIUM [Concomitant]
  7. ASPIRIN [Concomitant]

REACTIONS (7)
  - DECREASED APPETITE [None]
  - EARLY SATIETY [None]
  - ENERGY INCREASED [None]
  - ERYTHEMA [None]
  - FLUSHING [None]
  - HYPERHIDROSIS [None]
  - URINARY TRACT INFECTION [None]
